FAERS Safety Report 23394696 (Version 1)
Quarter: 2024Q1

REPORT INFORMATION
  Report Type: Spontaneous
  Country: SE (occurrence: SE)
  Receive Date: 20240112
  Receipt Date: 20240112
  Transmission Date: 20240410
  Serious: Yes (Other)
  Sender: FDA-Public Use
  Company Number: SE-ORG100013279-013553

PATIENT
  Age: 60 Year
  Sex: Female

DRUGS (3)
  1. ALPHAGAN P [Suspect]
     Active Substance: BRIMONIDINE TARTRATE
     Indication: Glaucoma
     Route: 047
  2. PILOCARPINE [Suspect]
     Active Substance: PILOCARPINE
     Indication: Glaucoma
     Dosage: 1 DROP MORNING AND EVENING?EYE DROPS
     Route: 047
     Dates: start: 20210825, end: 20210930
  3. LATANOPROST\TIMOLOL MALEATE [Suspect]
     Active Substance: LATANOPROST\TIMOLOL MALEATE
     Indication: Glaucoma
     Route: 065

REACTIONS (3)
  - Retinal tear [Recovered/Resolved]
  - Photopsia [Recovered/Resolved]
  - Vitreous detachment [Recovered/Resolved]

NARRATIVE: CASE EVENT DATE: 20210930
